FAERS Safety Report 7434685-2 (Version None)
Quarter: 2011Q2

REPORT INFORMATION
  Report Type: 
  Country: None (occurrence: None)
  Receive Date: 20110425
  Receipt Date: 20110411
  Transmission Date: 20111010
  Serious: Yes (Hospitalization)
  Sender: FDA-Public Use
  Company Number: JP-CELGENEUS-087-21880-11010150

PATIENT
  Sex: Female

DRUGS (14)
  1. ADEFURONIC [Suspect]
     Dosage: 50 MILLIGRAM
     Route: 048
     Dates: end: 20101114
  2. METHYCOBAL [Concomitant]
     Dosage: 1500 MICROGRAM
     Route: 048
     Dates: end: 20101114
  3. REVLIMID [Suspect]
     Indication: MULTIPLE MYELOMA
     Dosage: 15 MILLIGRAM
     Route: 048
     Dates: start: 20101109, end: 20101114
  4. LENADEX [Suspect]
     Indication: MULTIPLE MYELOMA
     Dosage: 20 MILLIGRAM
     Route: 048
     Dates: start: 20101109, end: 20101112
  5. FAMOTIDINE [Concomitant]
     Indication: PROPHYLAXIS
     Dosage: 40 MILLIGRAM
     Route: 048
     Dates: end: 20101114
  6. GOSHA-JINKI-GAN [Concomitant]
     Dosage: 7.5 GRAM
     Route: 048
     Dates: end: 20101114
  7. BAKTAR [Concomitant]
     Indication: PROPHYLAXIS
     Dosage: 1 TABLET
     Route: 048
     Dates: end: 20101130
  8. FLUCONAZOLE [Concomitant]
     Indication: PROPHYLAXIS
     Dosage: 100 MILLIGRAM
     Route: 048
     Dates: end: 20101114
  9. PRODIF [Concomitant]
     Indication: PROPHYLAXIS
     Dosage: 100 MILLIGRAM
     Route: 051
     Dates: start: 20101115, end: 20101123
  10. ASPIRIN [Suspect]
     Dosage: 100 MILLIGRAM
     Route: 048
     Dates: start: 20101124, end: 20101130
  11. FLUCONAZOLE [Concomitant]
     Dosage: 100 MILLIGRAM
     Route: 048
     Dates: start: 20101124, end: 20101130
  12. ALOSITOL [Concomitant]
     Indication: PROPHYLAXIS
     Dosage: 200 MILLIGRAM
     Route: 048
     Dates: end: 20101114
  13. METHYCOBAL [Concomitant]
     Dosage: 1500 MICROGRAM
     Route: 048
     Dates: start: 20101124, end: 20101130
  14. ASPIRIN [Suspect]
     Indication: PROPHYLAXIS
     Dosage: 100 MILLIGRAM
     Route: 048
     Dates: start: 20101109, end: 20101114

REACTIONS (2)
  - INTESTINAL ULCER [None]
  - GASTROINTESTINAL HAEMORRHAGE [None]
